FAERS Safety Report 15722740 (Version 1)
Quarter: 2018Q4

REPORT INFORMATION
  Report Type: Spontaneous
  Country: VN (occurrence: VN)
  Receive Date: 20181214
  Receipt Date: 20181214
  Transmission Date: 20190205
  Serious: Yes (Other)
  Sender: FDA-Public Use
  Company Number: VN-ROCHE-2230664

PATIENT
  Age: 63 Year
  Sex: Female

DRUGS (8)
  1. BASILIXIMAB [Concomitant]
     Active Substance: BASILIXIMAB
  2. PREDNISOLONE. [Concomitant]
     Active Substance: PREDNISOLONE
  3. VALCYTE [Concomitant]
     Active Substance: VALGANCICLOVIR HYDROCHLORIDE
     Route: 065
  4. CELLCEPT [Suspect]
     Active Substance: MYCOPHENOLATE MOFETIL\MYCOPHENOLATE MOFETIL HYDROCHLORIDE
     Indication: IMMUNOSUPPRESSANT DRUG THERAPY
     Route: 048
  5. METHYLPREDNISOLON [Concomitant]
     Active Substance: METHYLPREDNISOLONE
     Route: 065
  6. PROGRAFT [Concomitant]
     Active Substance: TACROLIMUS
  7. BACTRIM [Concomitant]
     Active Substance: SULFAMETHOXAZOLE\TRIMETHOPRIM
     Route: 065
  8. TACROLIMUS. [Concomitant]
     Active Substance: TACROLIMUS
     Route: 065

REACTIONS (4)
  - Intentional product use issue [Unknown]
  - Underdose [Unknown]
  - Transplant rejection [Recovered/Resolved]
  - Off label use [Unknown]
